FAERS Safety Report 5150033-5 (Version None)
Quarter: 2006Q4

REPORT INFORMATION
  Report Type: 
  Country: None (occurrence: None)
  Receive Date: 20061108
  Receipt Date: 20061102
  Transmission Date: 20070319
  Serious: No
  Sender: FDA-Public Use
  Company Number: 2006-909

PATIENT
  Sex: Female

DRUGS (1)
  1. HIBICLENS [Suspect]
     Indication: INFECTION PROPHYLAXIS

REACTIONS (3)
  - ACCIDENTAL EXPOSURE [None]
  - EYE DISCHARGE [None]
  - EYE SWELLING [None]
